FAERS Safety Report 22593569 (Version 1)
Quarter: 2023Q2

REPORT INFORMATION
  Report Type: Spontaneous
  Country: CA (occurrence: CA)
  Receive Date: 20230613
  Receipt Date: 20230613
  Transmission Date: 20230722
  Serious: Yes (Other)
  Sender: FDA-Public Use
  Company Number: CA-ROCHE-2612742

PATIENT
  Age: 41 Year
  Sex: Male

DRUGS (8)
  1. CAPECITABINE [Suspect]
     Active Substance: CAPECITABINE
     Indication: Parathyroid tumour malignant
  2. ETOPOSIDE [Suspect]
     Active Substance: ETOPOSIDE
     Indication: Parathyroid tumour malignant
  3. CISPLATIN [Suspect]
     Active Substance: CISPLATIN
     Indication: Parathyroid tumour malignant
     Route: 042
  4. DENOSUMAB [Suspect]
     Active Substance: DENOSUMAB
     Indication: Parathyroid tumour malignant
     Route: 058
  5. SORAFENIB [Suspect]
     Active Substance: SORAFENIB
     Indication: Parathyroid tumour malignant
  6. TEMOZOLOMIDE [Suspect]
     Active Substance: TEMOZOLOMIDE
     Indication: Parathyroid tumour malignant
  7. ZOLEDRONIC ACID [Suspect]
     Active Substance: ZOLEDRONIC ACID
     Indication: Parathyroid tumour malignant
  8. NEXAVAR [Suspect]
     Active Substance: SORAFENIB
     Indication: Neoplasm malignant

REACTIONS (7)
  - Malignant neoplasm progression [Unknown]
  - Metastases to liver [Unknown]
  - Metastases to lung [Unknown]
  - Metastases to lymph nodes [Unknown]
  - Metastases to peritoneum [Unknown]
  - Metastasis [Unknown]
  - Product use in unapproved indication [Unknown]
